FAERS Safety Report 7572955 (Version 4)
Quarter: 2019Q1

REPORT INFORMATION
  Report Type: Spontaneous
  Country: BR (occurrence: BR)
  Receive Date: 20100903
  Receipt Date: 20190114
  Transmission Date: 20190418
  Serious: Yes (Hospitalization)
  Sender: FDA-Public Use
  Company Number: BR-ROCHE-724271

PATIENT
  Age: 64 Year
  Sex: Male
  Weight: 84 kg

DRUGS (12)
  1. PROLOPA HBS [Suspect]
     Active Substance: BENSERAZIDE\LEVODOPA
     Indication: TREMOR
     Route: 065
     Dates: start: 20181228
  2. CABERGOLINE. [Concomitant]
     Active Substance: CABERGOLINE
     Indication: BIPOLAR DISORDER
  3. LITHIUM CARBONATE. [Concomitant]
     Active Substance: LITHIUM CARBONATE
     Indication: DEPRESSION
     Route: 065
  4. QUETIAPINE HEMIFUMARATE [Concomitant]
     Active Substance: QUETIAPINE FUMARATE
     Indication: BIPOLAR DISORDER
  5. RIVOTRIL [Suspect]
     Active Substance: CLONAZEPAM
     Indication: INSOMNIA
     Dosage: DOSE: 2.5 MG/ML
     Route: 048
     Dates: start: 20100827, end: 201407
  6. CARBOLITIUM [Concomitant]
     Active Substance: LITHIUM CARBONATE
     Indication: DEPRESSION
     Dosage: DOSE:900 MG/TAB
     Route: 065
  7. CARBAMAZEPINE. [Concomitant]
     Active Substance: CARBAMAZEPINE
  8. RIVOTRIL [Suspect]
     Active Substance: CLONAZEPAM
     Indication: INSOMNIA
     Dosage: 2MG/TAB
     Route: 048
     Dates: start: 2004, end: 20100826
  9. QUETIAPINE HEMIFUMARATE [Concomitant]
     Active Substance: QUETIAPINE FUMARATE
     Indication: DEPRESSION
     Route: 065
  10. ANDROSTENE [Concomitant]
     Route: 065
     Dates: start: 20100827
  11. LITHIUM CARBONATE. [Concomitant]
     Active Substance: LITHIUM CARBONATE
     Indication: BIPOLAR DISORDER
  12. CABERGOLINE. [Concomitant]
     Active Substance: CABERGOLINE
     Indication: DEPRESSION
     Route: 065

REACTIONS (7)
  - Rash [Not Recovered/Not Resolved]
  - Constipation [Not Recovered/Not Resolved]
  - Pruritus [Not Recovered/Not Resolved]
  - Overdose [Unknown]
  - Loss of consciousness [Recovered/Resolved]
  - Amnesia [Not Recovered/Not Resolved]
  - Drug ineffective [Unknown]

NARRATIVE: CASE EVENT DATE: 201005
